FAERS Safety Report 7135615-3 (Version None)
Quarter: 2010Q4

REPORT INFORMATION
  Report Type: 
  Country: None (occurrence: None)
  Receive Date: 20101203
  Receipt Date: 20101122
  Transmission Date: 20110411
  Serious: Yes (Hospitalization, Other)
  Sender: FDA-Public Use
  Company Number: US-ELI_LILLY_AND_COMPANY-US201011002415

PATIENT
  Sex: Male

DRUGS (16)
  1. FORTEO [Suspect]
     Indication: OSTEOPOROSIS
     Dosage: 20 UG, DAILY (1/D)
     Dates: start: 20100912
  2. FORTEO [Suspect]
     Dosage: 20 UG, DAILY (1/D)
  3. MORPHINE [Concomitant]
  4. FLOMAX [Concomitant]
     Dosage: 0.4 MG, EACH EVENING
  5. CLONIDINE [Concomitant]
     Dosage: 0.1 MG, 2/D
  6. PRILOSEC [Concomitant]
     Dosage: 40 MG, AS NEEDED
  7. POTASSIUM CHLORIDE [Concomitant]
     Dosage: UNK, AS NEEDED
  8. PRANDIN [Concomitant]
     Dosage: UNK, AS NEEDED
  9. LISINOPRIL [Concomitant]
     Dosage: 5 MG, DAILY (1/D)
  10. ZOCOR [Concomitant]
     Dosage: 40 MG, DAILY (1/D)
  11. COREG [Concomitant]
     Dosage: 12.5 MG, 2/D
  12. PREDNISONE [Concomitant]
  13. KINERET [Concomitant]
  14. GOLD [Concomitant]
  15. ENBREL [Concomitant]
  16. LASIX [Concomitant]
     Dosage: UNK, AS NEEDED

REACTIONS (7)
  - ABDOMINAL DISCOMFORT [None]
  - BREAKTHROUGH PAIN [None]
  - CONSTIPATION [None]
  - DECREASED APPETITE [None]
  - FLATULENCE [None]
  - ILEUS [None]
  - WEIGHT DECREASED [None]
